FAERS Safety Report 13661006 (Version 1)
Quarter: 2017Q2

REPORT INFORMATION
  Report Type: Report from Study
  Country: US (occurrence: US)
  Receive Date: 20170616
  Receipt Date: 20170616
  Transmission Date: 20170830
  Serious: Yes (Other)
  Sender: FDA-Public Use
  Company Number: US-BAYER-2017-094883

PATIENT
  Age: 79 Year
  Sex: Male

DRUGS (13)
  1. DOXAZOSIN MESYLATE. [Concomitant]
     Active Substance: DOXAZOSIN MESYLATE
  2. ATORVASTATIN CALCIUM. [Concomitant]
     Active Substance: ATORVASTATIN CALCIUM
  3. STIVARGA [Suspect]
     Active Substance: REGORAFENIB
     Indication: HEPATIC CANCER
     Dosage: 160 MG, QD
     Route: 048
     Dates: start: 20170504, end: 2017
  4. TIMOLOL MALEATE. [Concomitant]
     Active Substance: TIMOLOL MALEATE
  5. UREA. [Concomitant]
     Active Substance: UREA
  6. STIVARGA [Suspect]
     Active Substance: REGORAFENIB
     Indication: HEPATIC CANCER
     Dosage: DAILY DOSE 80 MG
     Route: 048
     Dates: start: 2017, end: 2017
  7. CITALOPRAM HYDROBROMIDE. [Concomitant]
     Active Substance: CITALOPRAM HYDROBROMIDE
  8. CLOTRIMAZOLE. [Concomitant]
     Active Substance: CLOTRIMAZOLE
  9. COENZYME Q10 [Concomitant]
     Active Substance: UBIDECARENONE
  10. LANSOPRAZOLE. [Concomitant]
     Active Substance: LANSOPRAZOLE
  11. DAPAGLIFLOZIN [Concomitant]
     Active Substance: DAPAGLIFLOZIN
  12. ONDANSETRON HYDROCHLORIDE. [Concomitant]
     Active Substance: ONDANSETRON HYDROCHLORIDE
  13. TARCEVA [Concomitant]
     Active Substance: ERLOTINIB HYDROCHLORIDE

REACTIONS (7)
  - Hypertension [None]
  - Fatigue [None]
  - Heart rate increased [None]
  - Fatigue [None]
  - Off label use [None]
  - Blood pressure fluctuation [None]
  - Product use in unapproved indication [None]

NARRATIVE: CASE EVENT DATE: 2017
